FAERS Safety Report 10269935 (Version 1)
Quarter: 2014Q2

REPORT INFORMATION
  Report Type: Spontaneous
  Country: US (occurrence: None)
  Receive Date: 20140625
  Receipt Date: 20140625
  Transmission Date: 20141212
  Serious: Yes (Hospitalization)
  Sender: FDA-Public Use
  Company Number: FK201402442

PATIENT
  Age: 04 Year
  Sex: Male

DRUGS (3)
  1. CARBOPLATIN [Suspect]
     Indication: MEDULLOBLASTOMA
  2. CISPLATIN (MANUFACTURER UNKNOWN) (CISPLATIN) (CISPLATIN) [Suspect]
     Indication: MEDULLOBLASTOMA
  3. CETUXIMAB (CETUXIMAB) (CETUXIMAB) [Suspect]
     Indication: MEDULLOBLASTOMA

REACTIONS (16)
  - Tetany [None]
  - Hypomagnesaemia [None]
  - Hypocalcaemia [None]
  - Hypokalaemia [None]
  - Convulsion [None]
  - Feeling abnormal [None]
  - Rash [None]
  - Folliculitis [None]
  - Electrocardiogram QT prolonged [None]
  - Musculoskeletal stiffness [None]
  - Somnolence [None]
  - Hyperhidrosis [None]
  - Tachycardia [None]
  - Tachypnoea [None]
  - Dyskinesia [None]
  - Dyskinesia [None]
